FAERS Safety Report 23670818 (Version 2)
Quarter: 2024Q2

REPORT INFORMATION
  Report Type: Spontaneous
  Country: US (occurrence: US)
  Receive Date: 20240326
  Receipt Date: 20240430
  Transmission Date: 20240715
  Serious: No
  Sender: FDA-Public Use
  Company Number: US-ALKERMES INC.-ALK-2024-000688

PATIENT
  Age: 53 Year
  Sex: Male
  Weight: 73.016 kg

DRUGS (1)
  1. ARISTADA [Suspect]
     Active Substance: ARIPIPRAZOLE LAUROXIL
     Indication: Schizophrenia
     Dosage: 441 MILLIGRAM, QMO
     Route: 030
     Dates: start: 20220825, end: 20240207

REACTIONS (1)
  - Needle issue [Recovered/Resolved]

NARRATIVE: CASE EVENT DATE: 20240306
